FAERS Safety Report 7135601-3 (Version None)
Quarter: 2010Q4

REPORT INFORMATION
  Report Type: 
  Country: None (occurrence: None)
  Receive Date: 20101203
  Receipt Date: 20101122
  Transmission Date: 20110411
  Serious: No
  Sender: FDA-Public Use
  Company Number: US-ELI_LILLY_AND_COMPANY-US201010003083

PATIENT
  Sex: Female
  Weight: 53.515 kg

DRUGS (11)
  1. FORTEO [Suspect]
     Indication: OSTEOPOROSIS
     Dosage: 20 UG, DAILY (1/D)
     Route: 058
     Dates: start: 20100914, end: 20101006
  2. CALTRATE [Concomitant]
  3. FLEXAMIN [Concomitant]
  4. FISH OIL [Concomitant]
  5. SUPER B COMPLEX [Concomitant]
  6. ASPIRIN [Concomitant]
  7. VIT D [Concomitant]
  8. FLAXSEED OIL [Concomitant]
  9. LYSINE [Concomitant]
  10. LEVOTHYROXINE SODIUM [Concomitant]
  11. CHLORTHALIDONE [Concomitant]

REACTIONS (8)
  - AMNESIA [None]
  - CONFUSIONAL STATE [None]
  - FEELING ABNORMAL [None]
  - MALAISE [None]
  - MUSCLE FATIGUE [None]
  - NOCTURIA [None]
  - SLEEP DISORDER [None]
  - THINKING ABNORMAL [None]
